FAERS Safety Report 5566806-0 (Version None)
Quarter: 2007Q4

REPORT INFORMATION
  Report Type: 
  Country: None (occurrence: None)
  Receive Date: 20071219
  Receipt Date: 20071213
  Transmission Date: 20080405
  Serious: Yes (Death)
  Sender: FDA-Public Use
  Company Number: B0494945B

PATIENT
  Sex: Female
  Weight: 83 kg

DRUGS (3)
  1. TOPOTECAN [Suspect]
     Dosage: 7.6MG WEEKLY
     Route: 042
     Dates: start: 20070705, end: 20071122
  2. ZOFRAN [Concomitant]
     Indication: VOMITING
     Dosage: 8MG WEEKLY
     Route: 042
     Dates: start: 20070705, end: 20071122
  3. FORTECORTIN [Concomitant]
     Indication: VOMITING
     Dosage: 8MG WEEKLY
     Route: 042
     Dates: start: 20070705, end: 20071122

REACTIONS (3)
  - DYSPNOEA [None]
  - PULMONARY EMBOLISM [None]
  - SUDDEN DEATH [None]
